FAERS Safety Report 4651544-9 (Version None)
Quarter: 2005Q2

REPORT INFORMATION
  Report Type: 
  Country: None (occurrence: None)
  Receive Date: 20050503
  Receipt Date: 20050428
  Transmission Date: 20051028
  Serious: Yes (Hospitalization, Other)
  Sender: FDA-Public Use
  Company Number: US-MERCK-0504USA05010

PATIENT
  Age: 63 Year
  Sex: Female
  Weight: 81 kg

DRUGS (15)
  1. VIOXX [Suspect]
     Indication: ARTHRITIS
     Route: 048
  2. TUMS [Suspect]
     Indication: DYSPEPSIA
     Route: 065
     Dates: start: 19750101
  3. BEXTRA [Suspect]
     Route: 048
  4. CELEBREX [Suspect]
     Route: 048
  5. SYNTHROID [Concomitant]
     Route: 065
  6. TOPROL-XL [Concomitant]
     Route: 065
  7. ZANTAC [Concomitant]
     Route: 065
  8. ASPIRIN [Concomitant]
     Route: 065
  9. AVANDIA [Concomitant]
     Route: 065
  10. NORVASC [Concomitant]
     Route: 065
  11. IMDUR [Concomitant]
     Route: 065
  12. ALTACE [Concomitant]
     Route: 065
  13. PLAVIX [Concomitant]
     Route: 065
  14. CATAPRES [Concomitant]
     Route: 065
  15. LIPITOR [Concomitant]
     Route: 065

REACTIONS (12)
  - ANAEMIA [None]
  - ARTHRITIS [None]
  - CATHETER RELATED COMPLICATION [None]
  - CHEST PAIN [None]
  - CORONARY ARTERY STENOSIS [None]
  - MYOCARDIAL INFARCTION [None]
  - POST PROCEDURAL COMPLICATION [None]
  - PROCEDURAL COMPLICATION [None]
  - RENAL FAILURE ACUTE [None]
  - STENT OCCLUSION [None]
  - TOOTH INFECTION [None]
  - VASCULAR INJURY [None]
